FAERS Safety Report 22198124 (Version 1)
Quarter: 2023Q2

REPORT INFORMATION
  Report Type: Spontaneous
  Country: US (occurrence: US)
  Receive Date: 20230411
  Receipt Date: 20230411
  Transmission Date: 20230721
  Serious: Yes (Death, Other)
  Sender: FDA-Public Use
  Company Number: US-AMGEN-USASP2023059404

PATIENT

DRUGS (4)
  1. FILGRASTIM [Suspect]
     Active Substance: FILGRASTIM
     Indication: Acute myeloid leukaemia
     Dosage: 5 MICROGRAM/KILOGRAM D1-7
     Route: 058
  2. FLUDARABINE [Suspect]
     Active Substance: FLUDARABINE PHOSPHATE
     Indication: Acute myeloid leukaemia
     Dosage: 30 MILLIGRAM/SQ. METER D2-6
     Route: 042
  3. CYTARABINE [Suspect]
     Active Substance: CYTARABINE
     Indication: Acute myeloid leukaemia
     Dosage: 1.5 GRAM PER SQUARE METRE D2-6
     Route: 042
  4. VENETOCLAX [Suspect]
     Active Substance: VENETOCLAX
     Indication: Acute myeloid leukaemia
     Dosage: 400 MILLIGRAM D1-14
     Route: 048

REACTIONS (6)
  - Death [Fatal]
  - Haemorrhage intracranial [Fatal]
  - Acute myeloid leukaemia recurrent [Fatal]
  - Febrile neutropenia [Unknown]
  - Streptococcal bacteraemia [Unknown]
  - Fungal infection [Unknown]
